FAERS Safety Report 19500291 (Version 2)
Quarter: 2021Q3

REPORT INFORMATION
  Report Type: Report from Study
  Country: None (occurrence: US)
  Receive Date: 20210707
  Receipt Date: 20210714
  Transmission Date: 20211014
  Serious: Yes (Hospitalization, Other)
  Sender: FDA-Public Use
  Company Number: US-ABBVIE-21K-163-3980428-00

PATIENT
  Age: 57 Year
  Sex: Male
  Weight: 72.64 kg

DRUGS (7)
  1. DONEPEZIL. [Concomitant]
     Active Substance: DONEPEZIL
     Indication: CONFUSIONAL STATE
  2. COVID?19 VACCINE [Concomitant]
     Indication: COVID-19 IMMUNISATION
     Dosage: JOHNSON AND JOHNSON
     Route: 030
     Dates: start: 2021, end: 2021
  3. ESCITALOPRAM [Concomitant]
     Active Substance: ESCITALOPRAM OXALATE
     Indication: STRESS
  4. DUOPA [Suspect]
     Active Substance: CARBIDOPA\LEVODOPA
  5. COVID?19 VACCINE [Concomitant]
     Dosage: JOHNSON AND JOHNSON
     Route: 030
     Dates: start: 2021, end: 2021
  6. QUETIAPINE. [Concomitant]
     Active Substance: QUETIAPINE
     Indication: CONFUSIONAL STATE
  7. DUOPA [Suspect]
     Active Substance: CARBIDOPA\LEVODOPA
     Indication: PARKINSON^S DISEASE
     Dosage: (100ML INTO 7), 2?4ML, AS DIRECTED?4.63?20MG
     Route: 050
     Dates: start: 20210224

REACTIONS (9)
  - Stoma site discharge [Not Recovered/Not Resolved]
  - Parkinson^s disease [Unknown]
  - Confusional state [Recovering/Resolving]
  - Malaise [Recovering/Resolving]
  - Urinary tract infection [Recovered/Resolved]
  - On and off phenomenon [Not Recovered/Not Resolved]
  - Mental status changes [Recovering/Resolving]
  - Device occlusion [Recovered/Resolved]
  - Device expulsion [Recovered/Resolved]

NARRATIVE: CASE EVENT DATE: 2021
